FAERS Safety Report 8019225-1 (Version None)
Quarter: 2011Q4

REPORT INFORMATION
  Report Type: 
  Country: None (occurrence: None)
  Receive Date: 20111227
  Receipt Date: 20111212
  Transmission Date: 20120403
  Serious: Yes (Other)
  Sender: FDA-Public Use
  Company Number: 2011-000024

PATIENT
  Sex: Female

DRUGS (4)
  1. BONIVA [Suspect]
     Dosage: INFUSION EVERY 3 MO, INTRAVENOUS
     Route: 042
     Dates: end: 20071201
  2. RECLAST [Suspect]
     Dosage: ONCE YEARLY, INTRAVENOUS
     Route: 042
     Dates: start: 20080301
  3. ACTONEL [Suspect]
  4. FOSAMAX [Suspect]

REACTIONS (3)
  - PATHOLOGICAL FRACTURE [None]
  - PAIN [None]
  - FEMUR FRACTURE [None]
